FAERS Safety Report 19563237 (Version 1)
Quarter: 2021Q3

REPORT INFORMATION
  Report Type: Other
  Country: IT (occurrence: IT)
  Receive Date: 20210715
  Receipt Date: 20210715
  Transmission Date: 20211014
  Serious: Yes (Death, Other)
  Sender: FDA-Public Use
  Company Number: IT-EMD SERONO-9247188

PATIENT
  Age: 93 Year
  Sex: Male

DRUGS (19)
  1. HYDROXYCHLOROQUINE [Interacting]
     Active Substance: HYDROXYCHLOROQUINE
     Indication: COVID-19
     Dosage: FOR THE FIRST DAY
     Route: 065
     Dates: start: 2020, end: 2020
  2. DUTASTERIDE. [Suspect]
     Active Substance: DUTASTERIDE
     Indication: PRODUCT USED FOR UNKNOWN INDICATION
     Route: 065
  3. PERINDOPRIL [Suspect]
     Active Substance: PERINDOPRIL
     Indication: PRODUCT USED FOR UNKNOWN INDICATION
     Route: 065
  4. TAMSULOSIN [Suspect]
     Active Substance: TAMSULOSIN
     Indication: PRODUCT USED FOR UNKNOWN INDICATION
     Route: 065
  5. BARNIDIPINE [Concomitant]
     Active Substance: BARNIDIPINE
     Indication: PRODUCT USED FOR UNKNOWN INDICATION
     Route: 065
  6. AZITHROMYCIN ANHYDROUS. [Interacting]
     Active Substance: AZITHROMYCIN ANHYDROUS
     Indication: COVID-19
     Dosage: FOR THE FIRST DAY
     Route: 065
     Dates: start: 2020
  7. ENOXAPARIN [Suspect]
     Active Substance: ENOXAPARIN
     Indication: PRODUCT USED FOR UNKNOWN INDICATION
     Route: 065
  8. METFORMIN [Suspect]
     Active Substance: METFORMIN HYDROCHLORIDE
     Indication: DIABETES MELLITUS
     Route: 065
  9. INSULIN [Suspect]
     Active Substance: INSULIN NOS
     Indication: PRODUCT USED FOR UNKNOWN INDICATION
     Route: 065
  10. BISOPROLOL [Suspect]
     Active Substance: BISOPROLOL
     Indication: PRODUCT USED FOR UNKNOWN INDICATION
     Route: 065
  11. AZITHROMYCIN ANHYDROUS. [Interacting]
     Active Substance: AZITHROMYCIN ANHYDROUS
     Indication: COVID-19
     Dosage: FOR 3 TO 4 DAYS
     Route: 065
     Dates: start: 2020, end: 2020
  12. GLICLAZIDE [Suspect]
     Active Substance: GLICLAZIDE
     Indication: PRODUCT USED FOR UNKNOWN INDICATION
     Route: 065
  13. CEFTRIAXONE. [Concomitant]
     Active Substance: CEFTRIAXONE
     Indication: PRODUCT USED FOR UNKNOWN INDICATION
     Route: 065
  14. HYDROXYCHLOROQUINE [Interacting]
     Active Substance: HYDROXYCHLOROQUINE
     Indication: COVID-19
     Dosage: FOR 5 TO 7 DAYS
     Route: 065
     Dates: start: 2020, end: 2020
  15. SIMVASTATIN. [Suspect]
     Active Substance: SIMVASTATIN
     Indication: PRODUCT USED FOR UNKNOWN INDICATION
     Route: 065
  16. RAMIPRIL. [Concomitant]
     Active Substance: RAMIPRIL
     Indication: PRODUCT USED FOR UNKNOWN INDICATION
     Route: 065
  17. FUROSEMIDE. [Suspect]
     Active Substance: FUROSEMIDE
     Indication: PRODUCT USED FOR UNKNOWN INDICATION
     Route: 065
  18. VILDAGLIPTIN [Suspect]
     Active Substance: VILDAGLIPTIN
     Indication: PRODUCT USED FOR UNKNOWN INDICATION
     Route: 065
  19. LOPINAVIR/RITONAVIR [Interacting]
     Active Substance: LOPINAVIR\RITONAVIR
     Indication: COVID-19
     Dosage: 400/100 MG FOR 7 TO 14 DAYS
     Route: 048
     Dates: start: 2020, end: 2020

REACTIONS (5)
  - Drug interaction [Fatal]
  - Electrocardiogram QT prolonged [Fatal]
  - Drug interaction [Fatal]
  - Off label use [Unknown]
  - Off label use [Fatal]

NARRATIVE: CASE EVENT DATE: 2020
